FAERS Safety Report 25380204 (Version 1)
Quarter: 2025Q2

REPORT INFORMATION
  Report Type: Report from Study
  Country: AR (occurrence: AR)
  Receive Date: 20250530
  Receipt Date: 20250530
  Transmission Date: 20250716
  Serious: Yes (Hospitalization, Other)
  Sender: AMGEN
  Company Number: AR-AMGEN-ARGSL2024102577

PATIENT
  Age: 77 Year
  Sex: Female

DRUGS (1)
  1. VECTIBIX [Suspect]
     Active Substance: PANITUMUMAB
     Indication: Colorectal cancer
     Route: 065
     Dates: start: 20240508

REACTIONS (14)
  - Fall [Unknown]
  - Illness [Recovering/Resolving]
  - Syncope [Unknown]
  - Dry skin [Not Recovered/Not Resolved]
  - Blood potassium decreased [Unknown]
  - Diarrhoea [Unknown]
  - Depressed mood [Not Recovered/Not Resolved]
  - Nasopharyngitis [Unknown]
  - Hypotension [Unknown]
  - Dizziness [Unknown]
  - Urinary tract infection [Not Recovered/Not Resolved]
  - Nausea [Unknown]
  - Decreased immune responsiveness [Unknown]
  - Hypersensitivity [Unknown]

NARRATIVE: CASE EVENT DATE: 20240101
